FAERS Safety Report 5541679-0 (Version None)
Quarter: 2007Q4

REPORT INFORMATION
  Report Type: 
  Country: None (occurrence: None)
  Receive Date: 20071210
  Receipt Date: 20071129
  Transmission Date: 20080405
  Serious: Yes (Hospitalization)
  Sender: FDA-Public Use
  Company Number: FR-AVENTIS-200713662FR

PATIENT
  Age: 73 Year
  Sex: Male

DRUGS (7)
  1. FLAGYL [Suspect]
     Route: 048
     Dates: start: 20070607, end: 20070618
  2. CALCIPARINE [Suspect]
     Route: 058
     Dates: start: 20070609, end: 20070618
  3. PERFALGAN [Suspect]
     Route: 042
     Dates: end: 20070617
  4. OFLOCET                            /00731801/ [Concomitant]
     Route: 048
     Dates: start: 20070607
  5. IRBESARTAN [Concomitant]
  6. AUGMENTIN '125' [Concomitant]
     Route: 042
     Dates: start: 20070612
  7. CARDENSIEL [Concomitant]
     Route: 048

REACTIONS (1)
  - THROMBOCYTOPENIA [None]
